FAERS Safety Report 9086738 (Version 1)
Quarter: 2013Q1

REPORT INFORMATION
  Report Type: Spontaneous
  Country: FR (occurrence: FR)
  Receive Date: 20130131
  Receipt Date: 20130131
  Transmission Date: 20140127
  Serious: Yes (Hospitalization)
  Sender: FDA-Public Use
  Company Number: FR-PFIZER INC-2013033086

PATIENT
  Age: 72 Year
  Sex: Female

DRUGS (14)
  1. ALDACTONE [Suspect]
     Indication: HYPERTENSION
     Dosage: 75 MG, 1X/DAY
     Route: 048
     Dates: end: 20111124
  2. ALDACTONE [Suspect]
     Dosage: 0.5 DF, 1X/DAYIN THE MORNING
     Route: 048
     Dates: start: 20111125, end: 201201
  3. LASILIX [Suspect]
     Indication: HYPERTENSION
     Dosage: 125MG PLUS 80MG
     Route: 048
     Dates: end: 20111124
  4. LASILIX [Suspect]
     Dosage: 125MG PLUS 40MG
     Route: 048
     Dates: start: 20111125
  5. LASILIX [Suspect]
     Dosage: 40 MG, 3X/DAY
     Route: 048
     Dates: start: 20111213, end: 201201
  6. HYDROCHLOROTHIAZIDE [Suspect]
     Indication: HYPERTENSION
     Dosage: 6.25 MG, 1X/DAY
     Route: 048
     Dates: end: 201201
  7. ATARAX [Suspect]
     Dosage: 50 MG, 1X/DAY
     Route: 048
     Dates: start: 20111216, end: 201201
  8. BISOPROLOL [Concomitant]
     Dosage: 1 DF, 1X/DAY IN THE MORNING
  9. COUMADINE [Concomitant]
     Dosage: 0.5 DF, 1X/DAY, IN THE EVENING
  10. KAYEXALATE [Concomitant]
     Dosage: 1 DF, 2X/DAY, IN THE MORNING AND IN THE EVENING
  11. OMEPRAZOLE [Concomitant]
     Dosage: 20 MG, 1X/DAY, IN THE EVENING
  12. DOLIPRANE [Concomitant]
     Dosage: 500MG
  13. ORBENINE [Concomitant]
     Dosage: 2 DF, 2X/DAY, IN THE MORNING AND IN THE EVENING
     Dates: end: 20111205
  14. FUNGIZONE [Concomitant]

REACTIONS (1)
  - Hepatic encephalopathy [Not Recovered/Not Resolved]
